FAERS Safety Report 17224905 (Version 2)
Quarter: 2020Q1

REPORT INFORMATION
  Report Type: Spontaneous
  Country: US (occurrence: US)
  Receive Date: 20200102
  Receipt Date: 20200106
  Transmission Date: 20200409
  Serious: Yes (Death)
  Sender: FDA-Public Use
  Company Number: US-JNJFOC-20191240632

PATIENT
  Sex: Male

DRUGS (1)
  1. TETRAHYDROZOLINE HYDROCHLORIDE. [Suspect]
     Active Substance: TETRAHYDROZOLINE HYDROCHLORIDE
     Indication: HOMICIDE
     Route: 048

REACTIONS (2)
  - Poisoning deliberate [Fatal]
  - Wrong technique in product usage process [Fatal]

NARRATIVE: CASE EVENT DATE: 2018
